FAERS Safety Report 11764718 (Version 1)
Quarter: 2015Q4

REPORT INFORMATION
  Report Type: Spontaneous
  Country: US (occurrence: US)
  Receive Date: 20151120
  Receipt Date: 20151120
  Transmission Date: 20160304
  Serious: No
  Sender: FDA-Public Use
  Company Number: US-ELI_LILLY_AND_COMPANY-US201306006115

PATIENT
  Sex: Female

DRUGS (2)
  1. FORTEO [Suspect]
     Active Substance: TERIPARATIDE
     Indication: OSTEOPOROSIS
     Dosage: UNK, QD
  2. FORTEO [Suspect]
     Active Substance: TERIPARATIDE
     Indication: BONE DISORDER

REACTIONS (9)
  - Sweat discolouration [Unknown]
  - Lip exfoliation [Unknown]
  - Blister [Unknown]
  - Cheilitis [Unknown]
  - Skin atrophy [Unknown]
  - Secretion discharge [Unknown]
  - Limb discomfort [Unknown]
  - Haemorrhage subcutaneous [Unknown]
  - Arthralgia [Unknown]
